FAERS Safety Report 8888230 (Version 1)
Quarter: 2012Q4

REPORT INFORMATION
  Report Type: 
  Country: US (occurrence: US)
  Receive Date: 20121106
  Receipt Date: 20121106
  Transmission Date: 20130627
  Serious: No
  Sender: FDA-Public Use
  Company Number: US-JNJFOC-20121015422

PATIENT
  Age: 52 Year
  Sex: Male

DRUGS (4)
  1. HALDOL DECANOATE [Suspect]
     Indication: PRODUCT USED FOR UNKNOWN INDICATION
     Route: 030
  2. INVEGA SUSTENNA [Suspect]
     Indication: PRODUCT USED FOR UNKNOWN INDICATION
     Route: 030
     Dates: start: 20121018
  3. RISPERIDONE [Suspect]
     Indication: PRODUCT USED FOR UNKNOWN INDICATION
     Route: 030
  4. SEROQUEL [Suspect]
     Indication: PRODUCT USED FOR UNKNOWN INDICATION
     Route: 065
     Dates: end: 20121018

REACTIONS (9)
  - Condition aggravated [Unknown]
  - Drug administration error [Unknown]
  - Wrong drug administered [None]
  - Psychotic disorder [None]
  - Agitation [None]
  - Paranoia [None]
  - Hallucination [None]
  - Rebound effect [None]
  - Product quality issue [None]
